FAERS Safety Report 23451559 (Version 2)
Quarter: 2024Q1

REPORT INFORMATION
  Report Type: Spontaneous
  Country: US (occurrence: US)
  Receive Date: 20240129
  Receipt Date: 20240318
  Transmission Date: 20240409
  Serious: No
  Sender: FDA-Public Use
  Company Number: US-SA-SAC20240119001103

PATIENT
  Age: 21 Year
  Sex: Female

DRUGS (2)
  1. DUPIXENT [Suspect]
     Active Substance: DUPILUMAB
     Indication: Dermatitis atopic
     Dosage: 300 MG, QOW
     Route: 058
     Dates: start: 202306
  2. DUPIXENT [Suspect]
     Active Substance: DUPILUMAB
     Dosage: 300 MG, QOW
     Route: 058
     Dates: start: 20231115, end: 20240124

REACTIONS (5)
  - Blepharitis [Unknown]
  - Conjunctivitis [Unknown]
  - Erythema of eyelid [Unknown]
  - Eyelid margin crusting [Unknown]
  - Condition aggravated [Unknown]

NARRATIVE: CASE EVENT DATE: 20231220
